FAERS Safety Report 4511310-1 (Version None)
Quarter: 2004Q4

REPORT INFORMATION
  Report Type: 
  Country: None (occurrence: None)
  Receive Date: 20041123
  Receipt Date: 20041123
  Transmission Date: 20050328
  Serious: Yes (Hospitalization)
  Sender: FDA-Public Use
  Company Number: None

PATIENT
  Age: 70 Year
  Sex: Male
  Weight: 85.3 kg

DRUGS (10)
  1. LITHIUM [Suspect]
     Indication: DEPRESSION
     Dosage: 300 MG TID ORAL
     Route: 048
     Dates: start: 20030224, end: 20040908
  2. CITALOPRAM HYDROBROMIDE [Concomitant]
  3. TEMAZEPAM [Concomitant]
  4. TRAZODONE HCL [Concomitant]
  5. ALPRAZOLAM [Concomitant]
  6. NEURONTIN [Concomitant]
  7. FERROUS GLUCONATE [Concomitant]
  8. NITROGLYCERIN [Concomitant]
  9. ASPRIN [Concomitant]
  10. ALBUTEROL/IPRATROPIUM INHL [Concomitant]

REACTIONS (2)
  - CONFUSIONAL STATE [None]
  - THERAPEUTIC AGENT TOXICITY [None]
